FAERS Safety Report 25087662 (Version 1)
Quarter: 2025Q1

REPORT INFORMATION
  Report Type: Spontaneous
  Country: GB (occurrence: GB)
  Receive Date: 20250318
  Receipt Date: 20250318
  Transmission Date: 20250409
  Serious: Yes (Life-Threatening, Hospitalization, Other)
  Sender: COLGATE
  Company Number: None

PATIENT

DRUGS (4)
  1. CHLORHEXIDINE [Suspect]
     Active Substance: CHLORHEXIDINE
  2. TEICOPLANIN [Suspect]
     Active Substance: TEICOPLANIN
  3. ROCURONIUM [Suspect]
     Active Substance: ROCURONIUM BROMIDE
  4. GENTAMICIN [Suspect]
     Active Substance: GENTAMICIN

REACTIONS (1)
  - Anaphylactic reaction [Recovered/Resolved]
